FAERS Safety Report 9834890 (Version 1)
Quarter: 2014Q1

REPORT INFORMATION
  Report Type: Spontaneous
  Country: CA (occurrence: CA)
  Receive Date: 20140122
  Receipt Date: 20140122
  Transmission Date: 20141002
  Serious: Yes (Other)
  Sender: FDA-Public Use
  Company Number: CA-GLAXOSMITHKLINE-A1057348A

PATIENT
  Age: 62 Year
  Sex: Male
  Weight: 86 kg

DRUGS (1)
  1. FLOVENT [Suspect]
     Indication: PRODUCT USED FOR UNKNOWN INDICATION
     Dosage: 2PUFF TWICE PER DAY
     Route: 055

REACTIONS (4)
  - Aggression [Recovered/Resolved]
  - Agitation [Unknown]
  - Depression [Unknown]
  - Irritability [Unknown]
